FAERS Safety Report 8932918 (Version 3)
Quarter: 2013Q1

REPORT INFORMATION
  Report Type: Spontaneous
  Country: US (occurrence: US)
  Receive Date: 20121128
  Receipt Date: 20130218
  Transmission Date: 20140127
  Serious: Yes (Hospitalization)
  Sender: FDA-Public Use
  Company Number: US-MPIJNJ-2012-08327

PATIENT
  Age: 52 Year
  Sex: Male
  Weight: 226.76 kg

DRUGS (2)
  1. VELCADE [Suspect]
     Indication: PLASMA CELL MYELOMA
     Dosage: 3.5 MG, 1/WEEK
     Route: 058
     Dates: start: 20120828, end: 20120828
  2. DECADRON                           /00016001/ [Suspect]
     Indication: PLASMA CELL MYELOMA
     Dosage: 40 MG, 1/WEEK
     Route: 048
     Dates: start: 20120828, end: 20120828

REACTIONS (3)
  - Wound [Recovered/Resolved]
  - Cellulitis [Recovered/Resolved]
  - Sepsis [Recovered/Resolved]
